FAERS Safety Report 8798967 (Version 1)
Quarter: 2012Q4

REPORT INFORMATION
  Report Type: 
  Country: US (occurrence: US)
  Receive Date: 20120920
  Receipt Date: 20120920
  Transmission Date: 20130627
  Serious: Yes (Other)
  Sender: FDA-Public Use
  Company Number: US-ROXANE LABORATORIES, INC.-2012-RO-01883RO

PATIENT
  Sex: Male

DRUGS (1)
  1. METHADONE [Suspect]
     Route: 064

REACTIONS (1)
  - Drug withdrawal syndrome neonatal [Unknown]
